FAERS Safety Report 9031453 (Version 1)
Quarter: 2013Q1

REPORT INFORMATION
  Report Type: Spontaneous
  Country: AU (occurrence: AU)
  Receive Date: 20130124
  Receipt Date: 20130124
  Transmission Date: 20140127
  Serious: Yes (Death)
  Sender: FDA-Public Use
  Company Number: AU-ROCHE-1182256

PATIENT
  Sex: Female

DRUGS (4)
  1. BEVACIZUMAB [Suspect]
     Indication: NON-SMALL CELL LUNG CANCER
     Route: 065
  2. FLUOROURACIL [Suspect]
     Indication: NON-SMALL CELL LUNG CANCER
     Route: 065
  3. FOLINIC ACID [Suspect]
     Indication: NON-SMALL CELL LUNG CANCER
     Route: 065
  4. OXALIPLATIN [Suspect]
     Indication: NON-SMALL CELL LUNG CANCER
     Route: 065

REACTIONS (4)
  - Disease progression [Fatal]
  - Pain [Fatal]
  - Intestinal obstruction [Fatal]
  - Fistula [Fatal]
